FAERS Safety Report 7673665 (Version 2)
Quarter: 2014Q2

REPORT INFORMATION
  Report Type: Spontaneous
  Country: US (occurrence: US)
  Receive Date: 20101118
  Receipt Date: 20140421
  Transmission Date: 20141212
  Serious: Yes (Hospitalization)
  Sender: FDA-Public Use
  Company Number: US-BAYER-201041621NA

PATIENT
  Age: 20 Year
  Sex: Female

DRUGS (11)
  1. YASMIN [Suspect]
     Route: 048
     Dates: start: 2005, end: 20070615
  2. YASMIN [Suspect]
     Route: 048
     Dates: start: 200804, end: 200810
  3. AMOXICILLIN [Concomitant]
     Dosage: 500 MG, TID
  4. HYDROCODONE W/APAP [Concomitant]
     Dosage: 1-2 Q ( EVERY) 4-6 HOURS PRN (AS NEEDED)
  5. IBUPROFEN [Concomitant]
     Dosage: 800 MG, BID
  6. PHENERGAN [Concomitant]
  7. PERCOCET [Concomitant]
  8. NORMAL SALINE [Concomitant]
  9. CAFFEINE [Concomitant]
  10. DILAUDID [Concomitant]
  11. FRAGMIN [Concomitant]

REACTIONS (1)
  - Superior sagittal sinus thrombosis [None]
